FAERS Safety Report 8311948-X (Version None)
Quarter: 2012Q1

REPORT INFORMATION
  Report Type: 
  Country: None (occurrence: None)
  Receive Date: 20120315
  Receipt Date: 20110422
  Transmission Date: 20120608
  Serious: Yes (Other)
  Sender: FDA-Public Use
  Company Number: PHHY2011US28326

PATIENT
  Age: 38 Year
  Sex: Female
  Weight: 62 kg

DRUGS (1)
  1. GILENYA [Suspect]
     Indication: MULTIPLE SCLEROSIS
     Dosage: 0.5 MG, QD, ORAL
     Route: 048
     Dates: start: 20110301, end: 20110317

REACTIONS (6)
  - OROPHARYNGEAL PAIN [None]
  - COUGH [None]
  - CD4 LYMPHOCYTES DECREASED [None]
  - RED BLOOD CELL COUNT DECREASED [None]
  - PYREXIA [None]
  - LYMPHOCYTE COUNT DECREASED [None]
